FAERS Safety Report 13776626 (Version 2)
Quarter: 2017Q3

REPORT INFORMATION
  Report Type: Spontaneous
  Country: DE (occurrence: DE)
  Receive Date: 20170721
  Receipt Date: 20170829
  Transmission Date: 20171127
  Serious: Yes (Other)
  Sender: FDA-Public Use
  Company Number: DE-PFIZER INC-2017312683

PATIENT
  Age: 35 Year
  Sex: Female

DRUGS (1)
  1. LANTAREL [Suspect]
     Active Substance: METHOTREXATE SODIUM
     Dosage: 20 MG, UNK

REACTIONS (1)
  - Injection site necrosis [Unknown]
